FAERS Safety Report 20136319 (Version 2)
Quarter: 2022Q2

REPORT INFORMATION
  Report Type: Report from Study
  Country: DK (occurrence: DK)
  Receive Date: 20211201
  Receipt Date: 20220401
  Transmission Date: 20220721
  Serious: Yes (Hospitalization)
  Sender: FDA-Public Use
  Company Number: DK-TAKEDA-DK201600617

PATIENT
  Age: 8 Year
  Sex: Male

DRUGS (1)
  1. IDURSULFASE [Suspect]
     Active Substance: IDURSULFASE
     Indication: Mucopolysaccharidosis II
     Dosage: 0.5 MILLIGRAM/KILOGRAM, 1/WEEK
     Route: 041
     Dates: start: 20140107

REACTIONS (2)
  - Urinary tract infection [Recovered/Resolved]
  - Cardiac valve disease [Recovered/Resolved]

NARRATIVE: CASE EVENT DATE: 20141111
